FAERS Safety Report 5397525-1 (Version None)
Quarter: 2007Q3

REPORT INFORMATION
  Report Type: 
  Country: None (occurrence: None)
  Receive Date: 20070726
  Receipt Date: 20070723
  Transmission Date: 20080115
  Serious: Yes (Hospitalization)
  Sender: FDA-Public Use
  Company Number: US-AMGEN-US227903

PATIENT
  Sex: Male

DRUGS (14)
  1. PANITUMUMAB [Suspect]
     Indication: SQUAMOUS CELL CARCINOMA
     Route: 042
     Dates: start: 20070417, end: 20070417
  2. PANITUMUMAB [Suspect]
     Route: 042
     Dates: start: 20070530, end: 20070530
  3. DOCETAXEL [Suspect]
     Indication: METASTATIC NEOPLASM
     Route: 042
     Dates: start: 20070417
  4. CISPLATIN [Suspect]
     Indication: METASTATIC NEOPLASM
     Route: 042
     Dates: start: 20070417
  5. PAXIL [Concomitant]
     Indication: DEPRESSION
     Route: 065
     Dates: start: 20070101
  6. ATIVAN [Concomitant]
     Indication: ANXIETY
     Route: 065
     Dates: start: 20070101
  7. ZOFRAN [Concomitant]
     Route: 065
     Dates: start: 20070417, end: 20070417
  8. KYTRIL [Concomitant]
     Route: 065
     Dates: start: 20070417
  9. EMEND [Concomitant]
     Route: 065
     Dates: start: 20070417
  10. DIFLUCAN [Concomitant]
     Route: 065
     Dates: start: 20070424, end: 20070504
  11. DECADRON [Concomitant]
     Dates: start: 20070416
  12. NEULASTA [Concomitant]
     Route: 058
     Dates: start: 20070531
  13. LEVAQUIN [Concomitant]
     Dates: start: 20070516
  14. MILK OF MAGNESIA [Concomitant]
     Dates: start: 20070427, end: 20070508

REACTIONS (3)
  - NEUTROPENIA [None]
  - SEPTIC SHOCK [None]
  - THROMBOCYTOPENIA [None]
